FAERS Safety Report 6635542-1 (Version None)
Quarter: 2010Q1

REPORT INFORMATION
  Report Type: 
  Country: None (occurrence: None)
  Receive Date: 20100315
  Receipt Date: 20091228
  Transmission Date: 20100710
  Serious: Yes (Hospitalization)
  Sender: FDA-Public Use
  Company Number: US-ABBOTT-09P-163-0615041-00

PATIENT
  Sex: Male

DRUGS (3)
  1. DEPAKOTE [Suspect]
     Indication: EPILEPSY
     Dates: start: 19880101, end: 19950101
  2. DEPAKOTE [Suspect]
     Dates: start: 19950101
  3. NEURONTIN [Concomitant]
     Indication: EPILEPSY
     Dates: start: 19990101

REACTIONS (1)
  - CONVULSION [None]
